FAERS Safety Report 24289644 (Version 1)
Quarter: 2024Q3

REPORT INFORMATION
  Report Type: Spontaneous
  Country: US (occurrence: None)
  Receive Date: 20240906
  Receipt Date: 20240906
  Transmission Date: 20241016
  Serious: No
  Sender: INFORLIFE
  Company Number: US-INFO-20240264

PATIENT
  Age: 82 Year
  Sex: Female
  Weight: 46 kg

DRUGS (8)
  1. ZOLEDRONIC ACID [Suspect]
     Active Substance: ZOLEDRONIC ACID
     Indication: Osteopenia
     Dosage: ()
     Dates: start: 20240801, end: 20240801
  2. DILTIAZEM [Concomitant]
     Active Substance: DILTIAZEM
     Indication: Hypertension
  3. LEVOTHYROXINE [Concomitant]
     Active Substance: LEVOTHYROXINE\LEVOTHYROXINE SODIUM
     Indication: Hypothyroidism
  4. DULOXETINE [Concomitant]
     Active Substance: DULOXETINE
     Indication: Depression
  5. CALCIUM [Concomitant]
     Active Substance: CALCIUM
     Indication: Osteoporosis
  6. VITAMIN D3 [Concomitant]
     Active Substance: CHOLECALCIFEROL
     Indication: Osteoporosis
  7. DEXILANT [Concomitant]
     Active Substance: DEXLANSOPRAZOLE
     Indication: Gastrointestinal disorder
  8. TYLENOL [Concomitant]
     Active Substance: ACETAMINOPHEN
     Dosage: ()
     Route: 041

REACTIONS (8)
  - Headache [Recovered/Resolved]
  - Myalgia [Recovering/Resolving]
  - Bone pain [Recovering/Resolving]
  - Pyrexia [Recovered/Resolved]
  - Urine flow decreased [Recovering/Resolving]
  - Skin exfoliation [Recovering/Resolving]
  - Drug hypersensitivity [Recovering/Resolving]
  - Off label use [Unknown]

NARRATIVE: CASE EVENT DATE: 20240801
